FAERS Safety Report 19114277 (Version 1)
Quarter: 2021Q2

REPORT INFORMATION
  Report Type: Spontaneous
  Country: FR (occurrence: FR)
  Receive Date: 20210409
  Receipt Date: 20210409
  Transmission Date: 20210717
  Serious: Yes (Death, Other)
  Sender: FDA-Public Use
  Company Number: FR-AUROBINDO-AUR-APL-2021-014620

PATIENT
  Sex: Male

DRUGS (4)
  1. MELPHALAN. [Suspect]
     Active Substance: MELPHALAN
     Indication: B-CELL LYMPHOMA RECURRENT
     Dosage: 140 MILLIGRAM/SQ. METER, 1 TOTAL
     Route: 041
     Dates: start: 20180602, end: 20180602
  2. CYTARABINE. [Suspect]
     Active Substance: CYTARABINE
     Indication: B-CELL LYMPHOMA RECURRENT
     Dosage: 100 MILLIGRAM/SQ. METER
     Route: 041
     Dates: start: 20180530, end: 20180601
  3. ETOPOSIDE. [Suspect]
     Active Substance: ETOPOSIDE
     Indication: B-CELL LYMPHOMA RECURRENT
     Dosage: 200 MILLIGRAM/SQ. METER, ONCE A DAY
     Route: 041
     Dates: start: 20180530, end: 20180601
  4. CARMUSTINE. [Suspect]
     Active Substance: CARMUSTINE
     Indication: B-CELL LYMPHOMA RECURRENT
     Dosage: 300 MILLIGRAM/SQ. METER
     Route: 041
     Dates: start: 20180529, end: 20180529

REACTIONS (2)
  - Acute respiratory distress syndrome [Fatal]
  - Interstitial lung disease [Fatal]

NARRATIVE: CASE EVENT DATE: 20180702
